FAERS Safety Report 5343787-6 (Version None)
Quarter: 2007Q2

REPORT INFORMATION
  Report Type: 
  Country: None (occurrence: None)
  Receive Date: 20070604
  Receipt Date: 20070525
  Transmission Date: 20071010
  Serious: Yes (Death)
  Sender: FDA-Public Use
  Company Number: PL-BAYER-200713017GDS

PATIENT
  Age: 44 Year
  Sex: Male

DRUGS (1)
  1. NEXAVAR [Suspect]
     Indication: RENAL CELL CARCINOMA STAGE UNSPECIFIED
     Route: 048

REACTIONS (2)
  - CACHEXIA [None]
  - FUNGAL INFECTION [None]
